FAERS Safety Report 8495811-X (Version None)
Quarter: 2012Q3

REPORT INFORMATION
  Report Type: 
  Country: None (occurrence: None)
  Receive Date: 20120709
  Receipt Date: 20120703
  Transmission Date: 20120928
  Serious: Yes (Other)
  Sender: FDA-Public Use
  Company Number: PHHY2012BR058167

PATIENT
  Sex: Female

DRUGS (5)
  1. AMLODOPINE BESYLATE AND VALSARTAN [Suspect]
     Indication: HYPERTENSION
     Dosage: 1 DF (80 MG VALS AND 5 MG , DAILY
  2. SIMVASTATIN [Concomitant]
     Indication: BLOOD CHOLESTEROL INCREASED
     Dosage: 1 DF, FOR DINNER
     Route: 048
  3. ASPIRIN [Suspect]
     Indication: CARDIOVASCULAR INSUFFICIENCY
     Dosage: 1 DF, DAILY
     Route: 048
  4. AMLODOPINE BESYLATE AND VALSARTAN [Suspect]
     Dosage: 1 DF (160 MG VALS AND 5 MG AMLO), DAILY
     Route: 048
  5. CITALOPRAM HYDROBROMIDE [Concomitant]
     Indication: INSOMNIA
     Dosage: 20 MG, QW2
     Route: 048

REACTIONS (2)
  - FALL [None]
  - PATELLA FRACTURE [None]
